FAERS Safety Report 15838686 (Version 1)
Quarter: 2019Q1

REPORT INFORMATION
  Report Type: Spontaneous
  Country: US (occurrence: US)
  Receive Date: 20190117
  Receipt Date: 20190117
  Transmission Date: 20190417
  Serious: Yes (Life-Threatening, Hospitalization, Other)
  Sender: FDA-Public Use
  Company Number: US-GILEAD-2019-0384891

PATIENT
  Age: 56 Year
  Sex: Male
  Weight: 82 kg

DRUGS (30)
  1. FLUDARABINE [Suspect]
     Active Substance: FLUDARABINE PHOSPHATE
     Indication: BONE MARROW CONDITIONING REGIMEN
     Dosage: UNK
     Route: 065
     Dates: start: 20181031, end: 20181102
  2. MORPHINE [Concomitant]
     Active Substance: MORPHINE
  3. BENADRYL [Concomitant]
     Active Substance: DIPHENHYDRAMINE HYDROCHLORIDE
  4. SUBLIMAZE [FENTANYL] [Concomitant]
  5. POTASSIUM CHLORIDE. [Concomitant]
     Active Substance: POTASSIUM CHLORIDE
  6. POTASSIUM PHOSPHATES [Concomitant]
     Active Substance: POTASSIUM PHOSPHATE, DIBASIC\POTASSIUM PHOSPHATE, MONOBASIC
  7. CEFEPIME [Concomitant]
     Active Substance: CEFEPIME HYDROCHLORIDE
  8. KEPPRA [Concomitant]
     Active Substance: LEVETIRACETAM
     Dosage: 500 MG
     Route: 048
     Dates: start: 20181105, end: 20181109
  9. KEPPRA [Concomitant]
     Active Substance: LEVETIRACETAM
     Dosage: 500 MG, BID
     Dates: start: 20181113
  10. PLASMA-LYTE A [Concomitant]
     Active Substance: MAGNESIUM CHLORIDE\POTASSIUM CHLORIDE\SODIUM ACETATE\SODIUM CHLORIDE\SODIUM GLUCONATE
  11. ATIVAN [Concomitant]
     Active Substance: LORAZEPAM
  12. DEMEROL [Concomitant]
     Active Substance: MEPERIDINE HYDROCHLORIDE
  13. KLOR-CON [Concomitant]
     Active Substance: POTASSIUM CHLORIDE
  14. REFRESH [CARMELLOSE] [Concomitant]
  15. MAGNESIUM SULFATE. [Concomitant]
     Active Substance: MAGNESIUM SULFATE
  16. PROZAC [Concomitant]
     Active Substance: FLUOXETINE HYDROCHLORIDE
  17. FLAGYL [Concomitant]
     Active Substance: METRONIDAZOLE\METRONIDAZOLE HYDROCHLORIDE
  18. ZOFRAN [Concomitant]
     Active Substance: ONDANSETRON HYDROCHLORIDE
  19. MELATONIN [Concomitant]
     Active Substance: MELATONIN
  20. MYCOSTATIN [Concomitant]
     Active Substance: NYSTATIN
  21. CYCLOPHOSPHAMIDE. [Suspect]
     Active Substance: CYCLOPHOSPHAMIDE
     Indication: BONE MARROW CONDITIONING REGIMEN
     Dosage: UNK
     Route: 065
     Dates: start: 20181031, end: 20181102
  22. ULORIC [Concomitant]
     Active Substance: FEBUXOSTAT
  23. NEUPOGEN [Concomitant]
     Active Substance: FILGRASTIM
  24. KEPPRA [Concomitant]
     Active Substance: LEVETIRACETAM
     Dosage: 1 G, BID
     Dates: start: 20181109, end: 20181112
  25. NORVASC [Concomitant]
     Active Substance: AMLODIPINE BESYLATE
  26. APRESOLINE HYDROCHLORIDE [Concomitant]
     Active Substance: HYDRALAZINE HYDROCHLORIDE
  27. YESCARTA [Suspect]
     Active Substance: AXICABTAGENE CILOLEUCEL
     Indication: DIFFUSE LARGE B-CELL LYMPHOMA
     Dosage: 2 X 10 6 CELLS/KG, ONCE
     Route: 042
     Dates: start: 20181105, end: 20181105
  28. TYLENOL [Concomitant]
     Active Substance: ACETAMINOPHEN
  29. ZOVIRAX [Concomitant]
     Active Substance: ACYCLOVIR
  30. PRECEDEX [Concomitant]
     Active Substance: DEXMEDETOMIDINE HYDROCHLORIDE

REACTIONS (13)
  - Somnolence [Unknown]
  - Confusional state [Unknown]
  - Agitation [Unknown]
  - Neurotoxicity [Recovered/Resolved]
  - Clostridium difficile colitis [Recovered/Resolved]
  - Dysgraphia [Unknown]
  - Pyrexia [Recovered/Resolved]
  - Flat affect [Unknown]
  - Brain oedema [Unknown]
  - Aphasia [Unknown]
  - Cytokine release syndrome [Recovered/Resolved]
  - Sinus tachycardia [Unknown]
  - Hypoxia [Unknown]

NARRATIVE: CASE EVENT DATE: 201811
